FAERS Safety Report 7811508-0 (Version None)
Quarter: 2011Q4

REPORT INFORMATION
  Report Type: 
  Country: None (occurrence: None)
  Receive Date: 20111013
  Receipt Date: 20111013
  Transmission Date: 20120403
  Serious: No
  Sender: FDA-Public Use
  Company Number: None

PATIENT
  Age: 15 Year
  Sex: Female
  Weight: 76.3 kg

DRUGS (1)
  1. PEGASPARGASE [Suspect]
     Indication: CHEMOTHERAPY
     Dosage: 4425 UNITS
     Route: 030

REACTIONS (1)
  - HYPERSENSITIVITY [None]
